FAERS Safety Report 13269904 (Version 10)
Quarter: 2017Q3

REPORT INFORMATION
  Report Type: Report from Study
  Country: DE (occurrence: DE)
  Receive Date: 20170224
  Receipt Date: 20170728
  Transmission Date: 20171127
  Serious: Yes (Hospitalization)
  Sender: FDA-Public Use
  Company Number: PHHY2017DE027295

PATIENT
  Age: 48 Year
  Sex: Male
  Weight: 78 kg

DRUGS (15)
  1. PLAVIX [Concomitant]
     Active Substance: CLOPIDOGREL BISULFATE
     Indication: CORONARY ARTERY DISEASE
     Dosage: 75 MG, QD
     Route: 048
     Dates: start: 20170208
  2. TRAMETINIB [Suspect]
     Active Substance: TRAMETINIB
     Indication: METASTATIC MALIGNANT MELANOMA
     Dosage: 2 MG, QD
     Route: 048
     Dates: start: 20161015, end: 20170213
  3. TAFINLAR [Suspect]
     Active Substance: DABRAFENIB MESYLATE
     Indication: METASTATIC MALIGNANT MELANOMA
     Dosage: 150 MG, BID
     Route: 048
     Dates: start: 20161015, end: 20170213
  4. TAFINLAR [Suspect]
     Active Substance: DABRAFENIB MESYLATE
     Dosage: 150 MG, QD
     Route: 048
     Dates: start: 20170214
  5. DELIX [Concomitant]
     Active Substance: RAMIPRIL
     Indication: HYPERTENSION
     Dosage: 5 MG, QD
     Route: 048
     Dates: start: 20170208
  6. INSPRA [Concomitant]
     Active Substance: EPLERENONE
     Indication: CORONARY ARTERY DISEASE
     Dosage: 25 MG, QD
     Route: 048
     Dates: start: 20170208
  7. ENTRESTO [Concomitant]
     Active Substance: SACUBITRIL\VALSARTAN
     Indication: CORONARY ARTERY DISEASE
     Dosage: 51 MG, BID
     Route: 048
     Dates: start: 20170409
  8. TRAMETINIB [Suspect]
     Active Substance: TRAMETINIB
     Dosage: UNK
     Route: 048
     Dates: start: 20170214
  9. SIMVASTATIN. [Concomitant]
     Active Substance: SIMVASTATIN
     Indication: ARTERIOSCLEROSIS
     Dosage: 40 MG, QD
     Route: 048
     Dates: start: 2014, end: 20170207
  10. LERCANIDIPINE [Concomitant]
     Active Substance: LERCANIDIPINE
     Indication: HYPERTENSION
     Dosage: 20 MG, QD
     Route: 048
     Dates: start: 20150225, end: 20170208
  11. ASPIRIN. [Concomitant]
     Active Substance: ASPIRIN
     Indication: ARTERIOSCLEROSIS
     Dosage: 100 MG, QD
     Route: 048
     Dates: start: 20150225
  12. ATORVASTATIN [Concomitant]
     Active Substance: ATORVASTATIN
     Indication: PRODUCT USED FOR UNKNOWN INDICATION
     Dosage: 40 MG, QD
     Route: 048
     Dates: start: 20170208
  13. PANTOZOL [Concomitant]
     Active Substance: PANTOPRAZOLE SODIUM
     Indication: PRODUCT USED FOR UNKNOWN INDICATION
     Dosage: 40 MG, QD
     Route: 048
     Dates: start: 2014, end: 20170207
  14. OMEP [Concomitant]
     Active Substance: OMEPRAZOLE
     Indication: PRODUCT USED FOR UNKNOWN INDICATION
     Dosage: 40 MG, QD
     Route: 048
     Dates: start: 20170208
  15. BELOZOK [Concomitant]
     Active Substance: METOPROLOL SUCCINATE
     Indication: CORONARY ARTERY DISEASE
     Dosage: 47.5 MG, QD
     Route: 048
     Dates: start: 20170208

REACTIONS (6)
  - Hypertension [Unknown]
  - Fatigue [Recovered/Resolved]
  - Congestive cardiomyopathy [Not Recovered/Not Resolved]
  - Coronary artery stenosis [Recovered/Resolved with Sequelae]
  - Fatigue [Unknown]
  - Fatigue [Unknown]

NARRATIVE: CASE EVENT DATE: 20161110
